FAERS Safety Report 25359302 (Version 1)
Quarter: 2025Q2

REPORT INFORMATION
  Report Type: Spontaneous
  Country: US (occurrence: US)
  Receive Date: 20250526
  Receipt Date: 20250526
  Transmission Date: 20250716
  Serious: Yes (Hospitalization)
  Sender: SANOFI AVENTIS
  Company Number: US-SA-2025SA149589

PATIENT
  Sex: Female

DRUGS (1)
  1. DUPIXENT [Suspect]
     Active Substance: DUPILUMAB
     Indication: Asthma
     Dosage: 300MG EVERY 14 DAYS
     Route: 058
     Dates: start: 202403

REACTIONS (5)
  - Chronic obstructive pulmonary disease [Unknown]
  - Asthma [Unknown]
  - Tooth loss [Unknown]
  - Nosocomial infection [Unknown]
  - Nausea [Unknown]
